FAERS Safety Report 14937281 (Version 1)
Quarter: 2018Q2

REPORT INFORMATION
  Report Type: Spontaneous
  Country: FR (occurrence: FR)
  Receive Date: 20180525
  Receipt Date: 20180525
  Transmission Date: 20180711
  Serious: Yes (Other)
  Sender: FDA-Public Use
  Company Number: FR-MERCK KGAA-2048432

PATIENT
  Age: 20 Year
  Sex: Male

DRUGS (1)
  1. NOVOTHYROX [Suspect]
     Active Substance: LEVOTHYROXINE SODIUM
     Indication: THYROID DISORDER

REACTIONS (17)
  - Pain in extremity [None]
  - Peripheral coldness [None]
  - Anger [None]
  - Nausea [None]
  - Cold sweat [None]
  - Fatigue [None]
  - Headache [None]
  - Altered state of consciousness [None]
  - Tachyarrhythmia [None]
  - Overdose [None]
  - Anxiety [None]
  - Insomnia [None]
  - Diarrhoea [None]
  - Stress [None]
  - Panic disorder [None]
  - Decreased interest [None]
  - Chills [None]

NARRATIVE: CASE EVENT DATE: 201712
